FAERS Safety Report 14347748 (Version 5)
Quarter: 2019Q1

REPORT INFORMATION
  Report Type: Spontaneous
  Country: IT (occurrence: IT)
  Receive Date: 20180103
  Receipt Date: 20190218
  Transmission Date: 20190417
  Serious: Yes (Other)
  Sender: FDA-Public Use
  Company Number: IT-MYLANLABS-2017M1083081

PATIENT
  Age: 78 Year
  Sex: Male
  Weight: 80 kg

DRUGS (23)
  1. VALSARTAN. [Suspect]
     Active Substance: VALSARTAN
     Indication: PRODUCT USED FOR UNKNOWN INDICATION
     Dosage: 320 MILLIGRAM, QD
     Route: 065
  2. FUROSEMIDE. [Suspect]
     Active Substance: FUROSEMIDE
     Indication: PRODUCT USED FOR UNKNOWN INDICATION
     Dosage: 40 MILLIGRAM, QD
     Route: 065
  3. DILATREND [Suspect]
     Active Substance: CARVEDILOL
     Dosage: 50 MILLIGRAM, QD
     Route: 065
  4. DILATREND [Suspect]
     Active Substance: CARVEDILOL
     Dosage: 18.75 MILLIGRAM, QD(12.5MG AT THE MORNING AND 6.25 AT THE EVENING
     Route: 065
  5. LEVOTHYROXINE. [Suspect]
     Active Substance: LEVOTHYROXINE
     Indication: PRODUCT USED FOR UNKNOWN INDICATION
     Dosage: UNK (25 MG, 50 MG, 100 MG)
     Route: 065
  6. DILATREND [Suspect]
     Active Substance: CARVEDILOL
     Indication: PRODUCT USED FOR UNKNOWN INDICATION
     Dosage: 25 MILLIGRAM, QD
     Route: 065
  7. DILATREND [Suspect]
     Active Substance: CARVEDILOL
     Dosage: 13 MILLIGRAM, QD
     Route: 065
  8. RIVAROXABAN [Suspect]
     Active Substance: RIVAROXABAN
     Indication: PRODUCT USED FOR UNKNOWN INDICATION
     Dosage: 20 MILLIGRAM, QD
     Route: 065
  9. DILATREND [Suspect]
     Active Substance: CARVEDILOL
     Dosage: 38 MILLIGRAM, QD
     Route: 065
  10. DILATREND [Suspect]
     Active Substance: CARVEDILOL
     Dosage: 19 MILLIGRAM, QD
     Route: 065
  11. SPIRONOLACTONE. [Suspect]
     Active Substance: SPIRONOLACTONE
     Dosage: 13 MILLIGRAM
     Route: 065
  12. DILATREND [Suspect]
     Active Substance: CARVEDILOL
     Dosage: 6.25 MILLIGRAM, QD (AT THE MORNING)
     Route: 065
  13. TIOTROPIUM [Suspect]
     Active Substance: TIOTROPIUM
     Indication: PRODUCT USED FOR UNKNOWN INDICATION
     Dosage: 1 DOSAGE FORM, QD
     Route: 065
  14. FUROSEMIDE. [Suspect]
     Active Substance: FUROSEMIDE
     Dosage: 20 UNK
     Route: 065
  15. ROSUVASTATIN. [Suspect]
     Active Substance: ROSUVASTATIN
     Indication: PRODUCT USED FOR UNKNOWN INDICATION
     Dosage: 20 MILLIGRAM, QD
     Route: 048
  16. ROSUVASTATIN. [Suspect]
     Active Substance: ROSUVASTATIN
     Dosage: 40 MILLIGRAM, QD
     Route: 048
  17. DILATREND [Suspect]
     Active Substance: CARVEDILOL
     Dosage: 37.5 MILLIGRAM, QD (25 MG AT THE MORNING AND 12.5 MG AT THE EVENING)
     Route: 065
  18. IRBESARTAN. [Suspect]
     Active Substance: IRBESARTAN
     Indication: PRODUCT USED FOR UNKNOWN INDICATION
     Dosage: 150 MILLIGRAM, QD
     Route: 065
  19. ROSUVASTATIN. [Suspect]
     Active Substance: ROSUVASTATIN
     Dosage: 10 MILLIGRAM, QD
     Route: 048
  20. DILATREND [Suspect]
     Active Substance: CARVEDILOL
     Dosage: 6 MILLIGRAM, QD
     Route: 065
  21. DILATREND [Suspect]
     Active Substance: CARVEDILOL
     Dosage: 12.5 MILLIGRAM, QD
     Route: 065
  22. RIVAROXABAN [Suspect]
     Active Substance: RIVAROXABAN
     Dosage: 15 MILLIGRAM, QD
     Route: 065
  23. SPIRONOLACTONE. [Suspect]
     Active Substance: SPIRONOLACTONE
     Indication: PRODUCT USED FOR UNKNOWN INDICATION
     Dosage: 12.5 MILLIGRAM
     Route: 065

REACTIONS (28)
  - C-reactive protein abnormal [Unknown]
  - Thyroiditis [Unknown]
  - Left ventricular dilatation [Unknown]
  - N-terminal prohormone brain natriuretic peptide abnormal [Unknown]
  - Obstructive airways disorder [Unknown]
  - Aortic aneurysm [Unknown]
  - Bundle branch block left [Unknown]
  - Mitral valve incompetence [Unknown]
  - Brain natriuretic peptide abnormal [Unknown]
  - Chronic obstructive pulmonary disease [Unknown]
  - Cardiac failure chronic [Recovering/Resolving]
  - Fall [Unknown]
  - Ejection fraction decreased [Unknown]
  - Oxygen saturation increased [Unknown]
  - Blood pressure increased [Unknown]
  - Electrocardiogram QRS complex abnormal [Unknown]
  - Blood thyroid stimulating hormone abnormal [Unknown]
  - Hypertension [Unknown]
  - Goitre [Unknown]
  - Conduction disorder [Unknown]
  - Atrial fibrillation [Unknown]
  - Cardiomegaly [Unknown]
  - Tricuspid valve incompetence [Unknown]
  - Dyspnoea [Unknown]
  - Fractured coccyx [Unknown]
  - Oedema peripheral [Unknown]
  - Type 2 diabetes mellitus [Unknown]
  - Ventricular hypokinesia [Unknown]

NARRATIVE: CASE EVENT DATE: 20150722
